FAERS Safety Report 12099434 (Version 1)
Quarter: 2016Q1

REPORT INFORMATION
  Report Type: Spontaneous
  Country: US (occurrence: None)
  Receive Date: 20160219
  Receipt Date: 20160219
  Transmission Date: 20160526
  Serious: Yes (Life-Threatening, Hospitalization, Disabling, Other)
  Sender: FDA-Public Use
  Company Number: None

PATIENT
  Age: 77 Year
  Sex: Female
  Weight: 68.95 kg

DRUGS (3)
  1. CENTRUM SILVER MULTI VIT [Concomitant]
  2. ASPIRIN. [Concomitant]
     Active Substance: ASPIRIN
  3. AUGMENTIN [Suspect]
     Active Substance: AMOXICILLIN\CLAVULANATE POTASSIUM
     Indication: INFLUENZA
     Dosage: 1 PILL TWICE A DAY
     Dates: start: 20151206, end: 20151216

REACTIONS (1)
  - Hepatitis cholestatic [None]

NARRATIVE: CASE EVENT DATE: 20151206
